FAERS Safety Report 23580338 (Version 1)
Quarter: 2024Q1

REPORT INFORMATION
  Report Type: Spontaneous
  Country: US (occurrence: None)
  Receive Date: 20240229
  Receipt Date: 20240229
  Transmission Date: 20240410
  Serious: No
  Sender: FDA-Public Use
  Company Number: US-USAntibiotics-000253

PATIENT
  Age: 35 Year
  Sex: Female

DRUGS (4)
  1. AUGMENTIN [Suspect]
     Active Substance: AMOXICILLIN\CLAVULANATE POTASSIUM
     Indication: Product used for unknown indication
  2. DUPIXENT [Concomitant]
     Active Substance: DUPILUMAB
     Indication: Eosinophilic oesophagitis
     Dosage: 300MG/2 ML SOLUTION FOR INJECTION 300 MG QW
     Route: 058
  3. DUPIXENT [Concomitant]
     Active Substance: DUPILUMAB
     Indication: Oesophagitis
     Dosage: 300MG/2 ML SOLUTION FOR INJECTION 300 MG QW
     Route: 058
  4. DUPIXENT [Concomitant]
     Active Substance: DUPILUMAB
     Indication: Complication associated with device
     Dosage: 300MG/2 ML SOLUTION FOR INJECTION 300 MG QW
     Route: 058

REACTIONS (1)
  - Drug hypersensitivity [Unknown]
